FAERS Safety Report 6386544-4 (Version None)
Quarter: 2009Q4

REPORT INFORMATION
  Report Type: 
  Country: None (occurrence: None)
  Receive Date: 20091002
  Receipt Date: 20090403
  Transmission Date: 20100525
  Serious: Yes (Hospitalization)
  Sender: FDA-Public Use
  Company Number: US-ASTRAZENECA-2009UW08558

PATIENT
  Age: 72 Year
  Sex: Female

DRUGS (7)
  1. ARIMIDEX [Suspect]
     Indication: BREAST CANCER
     Route: 048
     Dates: start: 20000101, end: 20080501
  2. CELEBREX [Concomitant]
  3. DIOVAN [Concomitant]
  4. NOVOLOG [Concomitant]
  5. SINGULAIR [Concomitant]
  6. NEXIUM [Concomitant]
  7. SYNTHROID [Concomitant]

REACTIONS (4)
  - BREAST MASS [None]
  - FLUID RETENTION [None]
  - PAIN IN EXTREMITY [None]
  - WEIGHT INCREASED [None]
